FAERS Safety Report 17890522 (Version 2)
Quarter: 2021Q4

REPORT INFORMATION
  Report Type: Spontaneous
  Country: US (occurrence: US)
  Receive Date: 20200612
  Receipt Date: 20211206
  Transmission Date: 20220304
  Serious: Yes (Disabling, Other)
  Sender: FDA-Public Use
  Company Number: US-TEVA-2020-US-1247181

PATIENT
  Age: 55 Year
  Sex: Female

DRUGS (17)
  1. DOCETAXEL [Suspect]
     Active Substance: DOCETAXEL
     Indication: Invasive ductal breast carcinoma
     Dosage: 6 CYCLES EVERY 3 WEEKS
     Route: 042
     Dates: start: 20131030, end: 20140212
  2. DOCETAXEL [Suspect]
     Active Substance: DOCETAXEL
     Dosage: INJECTION CONCENTRATE
     Route: 042
     Dates: start: 20131030, end: 20140212
  3. CYTOXAN [Suspect]
     Active Substance: CYCLOPHOSPHAMIDE
     Indication: Invasive ductal breast carcinoma
     Dosage: 6 CYCLES EVERY 3 WEEKS
     Route: 042
     Dates: start: 20131030, end: 20140212
  4. ZOFRAN [Concomitant]
     Active Substance: ONDANSETRON HYDROCHLORIDE
     Dosage: DOSE: 16 MG
     Route: 042
  5. NORPRAMIN [Concomitant]
     Active Substance: DESIPRAMINE HYDROCHLORIDE
     Indication: Depression
     Dosage: DOSE: 25 MG
     Route: 048
     Dates: start: 20100501, end: 20151210
  6. PROZAC [Concomitant]
     Active Substance: FLUOXETINE HYDROCHLORIDE
     Indication: Depression
     Dosage: DOSE: 20 MG
     Route: 048
     Dates: start: 20121119, end: 20151210
  7. HYDRODIURIL [Concomitant]
     Active Substance: HYDROCHLOROTHIAZIDE
     Indication: Hypertension
     Dosage: 25 MILLIGRAM DAILY;
     Route: 048
     Dates: start: 20131110, end: 20150428
  8. GLUCOPHAGE [Concomitant]
     Active Substance: METFORMIN HYDROCHLORIDE
     Indication: Type 2 diabetes mellitus
     Dosage: 500 MILLIGRAM DAILY;
     Route: 048
     Dates: start: 20131110
  9. PRAVACHOL [Concomitant]
     Active Substance: PRAVASTATIN SODIUM
     Indication: Hypercholesterolaemia
     Dosage: 40 MILLIGRAM DAILY;
     Route: 048
     Dates: start: 20120712, end: 20181210
  10. CLARITIN [Concomitant]
     Active Substance: LORATADINE
     Dosage: 10 MILLIGRAM DAILY;
     Route: 048
  11. NORCO [Concomitant]
     Active Substance: ACETAMINOPHEN\HYDROCODONE BITARTRATE
     Indication: Pain
     Dosage: DOSE: 5-325 MG 4 TIMES A DAY ANYTIME
     Route: 048
  12. VITAMINS [Concomitant]
     Active Substance: VITAMINS
     Route: 048
  13. PERCOCET [Concomitant]
     Active Substance: ACETAMINOPHEN\OXYCODONE HYDROCHLORIDE
     Indication: Pain
     Dosage: DOSE: 5-325 MG EVERY 4 HOURS A DAY AS NEEDED
     Route: 048
  14. EMEND [Concomitant]
     Active Substance: APREPITANT
     Dosage: DOSE: 150 MG
     Route: 042
  15. DEXAMETHASONE [Concomitant]
     Active Substance: DEXAMETHASONE
     Dosage: DOSE: 8 MG
     Route: 042
  16. BENADRYL [Concomitant]
     Active Substance: DIPHENHYDRAMINE HYDROCHLORIDE
     Dosage: DOSE: 25 MG
     Route: 042
  17. PEPCID [Concomitant]
     Active Substance: FAMOTIDINE
     Dosage: DOSE: 20 MG
     Route: 042

REACTIONS (33)
  - Alopecia areata [Not Recovered/Not Resolved]
  - Madarosis [Not Recovered/Not Resolved]
  - Neuropathy peripheral [Recovering/Resolving]
  - Hypokalaemia [Recovered/Resolved]
  - Hair texture abnormal [Not Recovered/Not Resolved]
  - Hair colour changes [Not Recovered/Not Resolved]
  - Malaise [Recovering/Resolving]
  - Fatigue [Unknown]
  - Decreased appetite [Unknown]
  - Nausea [Unknown]
  - Pain in jaw [Unknown]
  - Toothache [Unknown]
  - Mastication disorder [Unknown]
  - Scar [Unknown]
  - Wound complication [Unknown]
  - Infusion site pain [Unknown]
  - Bone pain [Unknown]
  - Anaemia [Unknown]
  - Swelling of eyelid [Unknown]
  - Lacrimation increased [Unknown]
  - Dry skin [Not Recovered/Not Resolved]
  - Dyspnoea exertional [Unknown]
  - Constipation [Recovering/Resolving]
  - Taste disorder [Unknown]
  - Nail bed tenderness [Unknown]
  - Vomiting [Unknown]
  - Dehydration [Unknown]
  - Urticaria [Unknown]
  - Skin exfoliation [Unknown]
  - Vision blurred [Unknown]
  - Eye pain [Recovered/Resolved]
  - Ocular hyperaemia [Recovered/Resolved]
  - Pain [Unknown]

NARRATIVE: CASE EVENT DATE: 20131101
